FAERS Safety Report 9173633 (Version 1)
Quarter: 2013Q1

REPORT INFORMATION
  Report Type: Spontaneous
  Country: IT (occurrence: IT)
  Receive Date: 20130320
  Receipt Date: 20130320
  Transmission Date: 20140127
  Serious: Yes (Other)
  Sender: FDA-Public Use
  Company Number: IT-MYLANLABS-2013S1005575

PATIENT
  Age: 82 Year
  Sex: Female

DRUGS (7)
  1. LEVOFLOXACIN [Suspect]
     Indication: URINARY TRACT INFECTION
     Route: 048
     Dates: start: 20130207, end: 20130214
  2. LOBIVON [Concomitant]
     Indication: PRODUCT USED FOR UNKNOWN INDICATION
  3. ZANEDIP [Concomitant]
     Indication: PRODUCT USED FOR UNKNOWN INDICATION
  4. CATAPRESAN [Concomitant]
     Indication: PRODUCT USED FOR UNKNOWN INDICATION
  5. RIVOTRIL [Concomitant]
     Indication: PRODUCT USED FOR UNKNOWN INDICATION
  6. BIPERIDEN [Concomitant]
     Indication: PRODUCT USED FOR UNKNOWN INDICATION
  7. CARDIOASPIRIN [Concomitant]
     Indication: PRODUCT USED FOR UNKNOWN INDICATION
     Route: 048

REACTIONS (4)
  - Confusional state [Recovered/Resolved]
  - Disorientation [Recovered/Resolved]
  - Gait disturbance [Recovered/Resolved]
  - Tenosynovitis [Recovered/Resolved]
